FAERS Safety Report 7912700-7 (Version None)
Quarter: 2011Q4

REPORT INFORMATION
  Report Type: 
  Country: None (occurrence: None)
  Receive Date: 20111114
  Receipt Date: 20110607
  Transmission Date: 20120403
  Serious: No
  Sender: FDA-Public Use
  Company Number: US-BAYER-2011-078470

PATIENT
  Age: 74 Year
  Sex: Female
  Weight: 111 kg

DRUGS (4)
  1. PRESERVISION EYE VITAMIN AND MINERAL SUPPL. [Concomitant]
  2. ANTIHYPERTENSIVES [Concomitant]
  3. ALEVE (CAPLET) [Suspect]
     Indication: ARTHRITIS
     Dosage: 2 TABLETS ONCE DAILY
     Route: 048
  4. MAGNESIUM HYDROXIDE TAB [Suspect]
     Indication: CONSTIPATION
     Dosage: 4 TABLESPOONFULS ONCE DAILY
     Route: 048
     Dates: start: 20110606

REACTIONS (1)
  - NO ADVERSE EVENT [None]
